FAERS Safety Report 22385317 (Version 2)
Quarter: 2023Q2

REPORT INFORMATION
  Report Type: Spontaneous
  Country: US (occurrence: US)
  Receive Date: 20230530
  Receipt Date: 20230601
  Transmission Date: 20230722
  Serious: No
  Sender: FDA-Public Use
  Company Number: US-PFIZER INC-PV202300094241

PATIENT
  Age: 75 Year
  Sex: Female

DRUGS (2)
  1. XELJANZ XR [Interacting]
     Active Substance: TOFACITINIB CITRATE
     Dosage: UNK
  2. CYCLOPHOSPHAMIDE [Interacting]
     Active Substance: CYCLOPHOSPHAMIDE
     Dosage: UNK

REACTIONS (2)
  - Drug interaction [Unknown]
  - White blood cell count decreased [Unknown]
